FAERS Safety Report 6578140-0 (Version None)
Quarter: 2010Q1

REPORT INFORMATION
  Report Type: 
  Country: None (occurrence: None)
  Receive Date: 20100211
  Receipt Date: 20100202
  Transmission Date: 20100710
  Serious: Yes (Hospitalization)
  Sender: FDA-Public Use
  Company Number: JP-PFIZER INC-2010015293

PATIENT
  Age: 47 Year
  Sex: Female
  Weight: 55.4 kg

DRUGS (2)
  1. AZITHROMYCIN [Suspect]
     Indication: PNEUMONIA
     Dosage: 500 MG, ONCE DAILY
     Route: 042
     Dates: start: 20100126
  2. AZITHROMYCIN [Suspect]
     Dosage: 500 MG ONCE DAILY
     Route: 048
     Dates: end: 20100202

REACTIONS (1)
  - PNEUMONIA [None]
